FAERS Safety Report 7709220-1 (Version None)
Quarter: 2011Q3

REPORT INFORMATION
  Report Type: 
  Country: None (occurrence: None)
  Receive Date: 20110825
  Receipt Date: 20110815
  Transmission Date: 20111222
  Serious: Yes (Congenital Anomaly)
  Sender: FDA-Public Use
  Company Number: ML-ROCHE-798229

PATIENT

DRUGS (3)
  1. FERROUS SULFATE TAB [Concomitant]
  2. FOLIC ACID [Concomitant]
  3. PYRIMETHAMINE/SULFADOXINE [Suspect]
     Indication: MALARIA PROPHYLAXIS
     Dosage: EACH SP DOSE; SULFADOXINE 1500 MG AND PYRIMETHAMINE 75 MG
     Route: 064

REACTIONS (1)
  - TALIPES [None]
